APPROVED DRUG PRODUCT: LORATADINE
Active Ingredient: LORATADINE
Strength: 1MG/ML
Dosage Form/Route: SYRUP;ORAL
Application: A077421 | Product #001
Applicant: LANNETT CO INC
Approved: Jun 29, 2006 | RLD: No | RS: No | Type: OTC